FAERS Safety Report 6509514-1 (Version None)
Quarter: 2009Q4

REPORT INFORMATION
  Report Type: 
  Country: None (occurrence: None)
  Receive Date: 20091222
  Receipt Date: 20091218
  Transmission Date: 20100525
  Serious: Yes (Death, Hospitalization)
  Sender: FDA-Public Use
  Company Number: JP-ELI_LILLY_AND_COMPANY-JP200909004135

PATIENT
  Sex: Male
  Weight: 73.4 kg

DRUGS (8)
  1. ALIMTA [Suspect]
     Indication: LUNG ADENOCARCINOMA RECURRENT
     Dosage: 962 MG, OTHER
     Route: 042
     Dates: start: 20090723
  2. PARAPLATIN [Concomitant]
     Indication: LUNG ADENOCARCINOMA RECURRENT
     Dosage: 538 MG,
     Route: 042
     Dates: start: 20090723
  3. PANVITAN [Concomitant]
     Dosage: 1 G, DAILY (1/D)
     Route: 048
     Dates: start: 20090715, end: 20090911
  4. FRISIUM [Concomitant]
     Dosage: 1 MG, OTHER
     Route: 030
     Dates: start: 20090715, end: 20090715
  5. TAKEPRON [Concomitant]
     Dosage: 30 MG, DAILY (1/D)
     Route: 048
     Dates: start: 20090723, end: 20090812
  6. CRESTOR [Concomitant]
     Dosage: 2.5 MG, DAILY (1/D)
     Route: 048
     Dates: start: 20090723, end: 20090731
  7. NAUZELIN [Concomitant]
     Dosage: 30 MG, DAILY (1/D)
     Route: 048
     Dates: start: 20090723, end: 20090911
  8. SUCRALFATE [Concomitant]
     Dosage: 30 MG, DAILY (1/D)
     Route: 048
     Dates: start: 20090723, end: 20090911

REACTIONS (4)
  - INTERSTITIAL LUNG DISEASE [None]
  - MALIGNANT NEOPLASM PROGRESSION [None]
  - RASH [None]
  - RHABDOMYOLYSIS [None]
